FAERS Safety Report 11885437 (Version 1)
Quarter: 2015Q4

REPORT INFORMATION
  Report Type: Spontaneous
  Country: US (occurrence: None)
  Receive Date: 20151231
  Receipt Date: 20151231
  Transmission Date: 20160305
  Serious: Yes (Other)
  Sender: FDA-Public Use
  Company Number: None

PATIENT
  Age: 47 Year
  Sex: Female
  Weight: 136.08 kg

DRUGS (3)
  1. SIMVASTATIN 20MG LUPIN PHRM [Suspect]
     Active Substance: SIMVASTATIN
     Indication: BLOOD CHOLESTEROL INCREASED
     Route: 048
     Dates: start: 20151201, end: 20151229
  2. VITAMIN D [Concomitant]
     Active Substance: CHOLECALCIFEROL
  3. METFORMIN HCL ER [Concomitant]
     Active Substance: METFORMIN HYDROCHLORIDE

REACTIONS (6)
  - Asthenia [None]
  - Alopecia [None]
  - Headache [None]
  - Back pain [None]
  - Pain [None]
  - Myalgia [None]

NARRATIVE: CASE EVENT DATE: 20151229
